FAERS Safety Report 24970356 (Version 2)
Quarter: 2025Q2

REPORT INFORMATION
  Report Type: Spontaneous
  Country: US (occurrence: US)
  Receive Date: 20250214
  Receipt Date: 20250609
  Transmission Date: 20250717
  Serious: Yes (Death, Life-Threatening, Hospitalization, Other)
  Sender: AMGEN
  Company Number: US-AMGEN-USASP2025027787

PATIENT
  Sex: Female

DRUGS (5)
  1. IMDELLTRA [Suspect]
     Active Substance: TARLATAMAB-DLLE
     Indication: Medullary thyroid cancer
     Route: 065
  2. IMDELLTRA [Suspect]
     Active Substance: TARLATAMAB-DLLE
     Indication: Off label use
     Route: 065
  3. IMDELLTRA [Suspect]
     Active Substance: TARLATAMAB-DLLE
     Route: 065
  4. IMDELLTRA [Suspect]
     Active Substance: TARLATAMAB-DLLE
     Route: 065
  5. IMDELLTRA [Suspect]
     Active Substance: TARLATAMAB-DLLE
     Route: 065

REACTIONS (7)
  - Death [Fatal]
  - Large intestine perforation [Unknown]
  - Immune effector cell-associated neurotoxicity syndrome [Unknown]
  - Cytokine release syndrome [Recovered/Resolved]
  - Pericardial effusion [Recovered/Resolved]
  - Bundle branch block left [Recovered/Resolved]
  - Off label use [Unknown]
